FAERS Safety Report 8349391-X (Version None)
Quarter: 2012Q2

REPORT INFORMATION
  Report Type: 
  Country: None (occurrence: None)
  Receive Date: 20120510
  Receipt Date: 20120507
  Transmission Date: 20120825
  Serious: Yes (Other)
  Sender: FDA-Public Use
  Company Number: US-PFIZER INC-2012111452

PATIENT
  Sex: Female
  Weight: 95.238 kg

DRUGS (11)
  1. SIMVASTATIN [Suspect]
     Indication: BLOOD CHOLESTEROL INCREASED
     Dosage: 20 MG, 1X/DAY
     Route: 048
     Dates: start: 20070101
  2. DETROL [Suspect]
     Indication: HYPERTONIC BLADDER
     Dosage: UNK, 2X/DAY
     Route: 048
  3. DETROL [Suspect]
     Indication: URINARY INCONTINENCE
  4. HYDROCHLOROTHIAZIDE [Concomitant]
     Indication: HYPERTENSION
     Dosage: UNK
  5. DETROL [Suspect]
     Indication: BLADDER DISORDER
  6. ATENOLOL [Concomitant]
     Indication: HYPERTENSION
     Dosage: UNK
  7. DETROL LA [Suspect]
     Indication: HYPERTONIC BLADDER
     Dosage: UNK, 1X/DAY
     Route: 048
  8. PREMARIN [Suspect]
     Indication: NIGHT SWEATS
     Dosage: 0.6 MG, 1X/DAY
     Route: 048
  9. DETROL LA [Suspect]
     Indication: URINARY INCONTINENCE
  10. LIPITOR [Suspect]
     Indication: BLOOD CHOLESTEROL INCREASED
     Dosage: 10 MG, 1X/DAY
     Route: 048
     Dates: start: 20050101, end: 20070101
  11. DETROL LA [Suspect]
     Indication: BLADDER DISORDER

REACTIONS (3)
  - CONDITION AGGRAVATED [None]
  - BLADDER DISORDER [None]
  - DRUG INEFFECTIVE [None]
